FAERS Safety Report 21213687 (Version 1)
Quarter: 2022Q3

REPORT INFORMATION
  Report Type: Report from Study
  Country: CO (occurrence: CO)
  Receive Date: 20220816
  Receipt Date: 20220816
  Transmission Date: 20221027
  Serious: Yes (Hospitalization, Other)
  Sender: FDA-Public Use
  Company Number: CO-ABBVIE-22K-036-4503796-00

PATIENT
  Age: 70 Year
  Sex: Female
  Weight: 56 kg

DRUGS (2)
  1. ZEMPLAR [Suspect]
     Active Substance: PARICALCITOL
     Indication: Hyperparathyroidism
     Route: 048
     Dates: start: 20170310
  2. ZEMPLAR [Suspect]
     Active Substance: PARICALCITOL
     Indication: Chronic kidney disease

REACTIONS (12)
  - Blood pressure abnormal [Recovering/Resolving]
  - Aphasia [Recovering/Resolving]
  - Nasal congestion [Recovering/Resolving]
  - Disorientation [Recovering/Resolving]
  - Oral disorder [Recovering/Resolving]
  - Visual impairment [Recovered/Resolved]
  - Vision blurred [Recovered/Resolved]
  - Amnesia [Recovering/Resolving]
  - Blood pressure increased [Recovering/Resolving]
  - Stress [Recovering/Resolving]
  - Headache [Recovering/Resolving]
  - Rhinitis [Recovering/Resolving]

NARRATIVE: CASE EVENT DATE: 20210801
